FAERS Safety Report 16266128 (Version 1)
Quarter: 2019Q2

REPORT INFORMATION
  Report Type: Spontaneous
  Country: US (occurrence: US)
  Receive Date: 20190502
  Receipt Date: 20190502
  Transmission Date: 20190711
  Serious: Yes (Other)
  Sender: FDA-Public Use
  Company Number: US-PFIZER INC-2019182311

PATIENT
  Age: 1 Year
  Sex: Male

DRUGS (1)
  1. GENOTROPIN [Suspect]
     Active Substance: SOMATROPIN
     Dosage: 0.2 MG, UNK

REACTIONS (7)
  - Phimosis [Unknown]
  - Disabled relative [Unknown]
  - Growth retardation [Unknown]
  - Body height below normal [Unknown]
  - Paternal exposure timing unspecified [Unknown]
  - Gastrooesophageal reflux disease [Unknown]
  - Drug withdrawal syndrome neonatal [Unknown]
